FAERS Safety Report 9692453 (Version 1)
Quarter: 2013Q1

REPORT INFORMATION
  Report Type: Spontaneous
  Country: US (occurrence: None)
  Receive Date: 20130318
  Receipt Date: 20130318
  Transmission Date: 20140127
  Serious: Yes (Other)
  Sender: FDA-Public Use
  Company Number: 2011-024

PATIENT
  Sex: Female

DRUGS (1)
  1. DORZOLAMIDE HCL/TIMOLOL MALEATE [Suspect]
     Dosage: 1 DR, UB EA, ETE 2 TIME

REACTIONS (2)
  - Heart rate irregular [None]
  - Dyspnoea [None]
